FAERS Safety Report 24398470 (Version 1)
Quarter: 2024Q4

REPORT INFORMATION
  Report Type: Spontaneous
  Country: US (occurrence: US)
  Receive Date: 20241004
  Receipt Date: 20241004
  Transmission Date: 20250114
  Serious: No
  Sender: INTRA-CELLULAR THERAPIES
  Company Number: US-INTRA-CELLULAR THERAPIES, INC.-2024ICT01039

PATIENT
  Age: 31 Year
  Sex: Male

DRUGS (4)
  1. CAPLYTA [Suspect]
     Active Substance: LUMATEPERONE
     Indication: Bipolar disorder
     Dosage: 21 MG
  2. CAPLYTA [Suspect]
     Active Substance: LUMATEPERONE
     Dosage: 42 MG
  3. QUETIAPINE [Concomitant]
     Active Substance: QUETIAPINE
     Dosage: 500 MG
  4. QUETIAPINE [Concomitant]
     Active Substance: QUETIAPINE
     Dosage: 3 WEEK TAPER

REACTIONS (1)
  - Hypomania [Unknown]
